FAERS Safety Report 15439224 (Version 2)
Quarter: 2018Q4

REPORT INFORMATION
  Report Type: Spontaneous
  Country: US (occurrence: US)
  Receive Date: 20180928
  Receipt Date: 20181113
  Transmission Date: 20190204
  Serious: Yes (Hospitalization)
  Sender: FDA-Public Use
  Company Number: US-AMGEN-USASP2018133865

PATIENT
  Age: 34 Year
  Sex: Female
  Weight: 123.36 kg

DRUGS (32)
  1. CYMBALTA [Concomitant]
     Active Substance: DULOXETINE HYDROCHLORIDE
     Dosage: 30 MG, DELAYED RELEASE
     Route: 048
  2. KLONOPIN [Concomitant]
     Active Substance: CLONAZEPAM
     Dosage: 1 MG, 1 TABLET THREE TIMES DAILY AS NEEDED
     Route: 048
  3. MUPIROCIN. [Concomitant]
     Active Substance: MUPIROCIN
     Dosage: AS NEEDED
  4. SINGULAIR [Concomitant]
     Active Substance: MONTELUKAST SODIUM
     Dosage: 10 MG, QD
  5. CLONAZEPAM. [Concomitant]
     Active Substance: CLONAZEPAM
  6. ACZONE [Concomitant]
     Active Substance: DAPSONE
     Dosage: 1 G, QD
  7. VICTOZA [Concomitant]
     Active Substance: LIRAGLUTIDE
  8. VALPROIC ACID. [Concomitant]
     Active Substance: VALPROIC ACID
     Indication: HEADACHE
  9. BUPROPION HCL ER [Concomitant]
     Active Substance: BUPROPION HYDROCHLORIDE
     Dosage: 150 MG, 3 TABLTES DAILY, EXTENDED RELEASE 24 HOURS
     Route: 048
     Dates: start: 20180128
  10. DEPLIN [Concomitant]
     Active Substance: LEVOMEFOLATE CALCIUM
     Dosage: 15 MG, 1 TABLET DAILY
  11. DICLOFENAC SODIUM. [Concomitant]
     Active Substance: DICLOFENAC SODIUM
     Dosage: 75 MG, 1 TABLET TWICE A DAY
     Route: 048
     Dates: start: 20180307
  12. LAMICTAL [Concomitant]
     Active Substance: LAMOTRIGINE
     Dosage: 300 MG, 1 TABLET DAILY
     Route: 048
  13. TRILEPTAL [Concomitant]
     Active Substance: OXCARBAZEPINE
     Dosage: 600 MG, 2 TABLETS DAILY
     Route: 048
  14. VITAMINE D3 B.O.N. [Concomitant]
     Dosage: 5000 UNIT, 1 TABLET DAILY
     Route: 048
  15. LYRICA [Concomitant]
     Active Substance: PREGABALIN
     Dosage: 200 MG, 1 CAPSULE TWICE DAILY
     Route: 048
     Dates: start: 20180406
  16. CALCIUM MAGNESIUM [Concomitant]
     Active Substance: CALCIUM\MAGNESIUM
     Dosage: 1 TABLET DAILY
  17. AIMOVIG [Suspect]
     Active Substance: ERENUMAB-AOOE
     Indication: MIGRAINE WITH AURA
     Dosage: 140 MG, QMO
     Route: 058
     Dates: start: 20180713, end: 20181002
  18. OMEGA 3 [Concomitant]
     Active Substance: OMEGA-3 FATTY ACIDS
     Dosage: 1 CAPSULE DAILY
  19. SAPHRIS [Concomitant]
     Active Substance: ASENAPINE MALEATE
     Dosage: 2.5 MG, 1 TABLET DAILY
     Route: 060
     Dates: start: 20180607
  20. SOMA [Concomitant]
     Active Substance: CARISOPRODOL
     Dosage: 350 MG, THREE TIMES DAILY
     Route: 048
  21. BUTRANS [Concomitant]
     Active Substance: BUPRENORPHINE
     Dosage: 20 MUG, EVERY SEVEN DAYS
     Route: 062
     Dates: start: 20171114
  22. PANOXYL WASH [Concomitant]
     Indication: ACNE
     Dosage: WASH ACNE ONCE DAILY
     Route: 061
     Dates: start: 20170830
  23. PENNSAID [Concomitant]
     Active Substance: DICLOFENAC SODIUM
     Dosage: SOLUTION 2% PRN
  24. DULOXETINE HCL [Concomitant]
     Active Substance: DULOXETINE HYDROCHLORIDE
     Dosage: 4 CAPSULES DAILY
  25. LIDOCAINE/PRILOCAINE [Concomitant]
     Active Substance: LIDOCAINE\PRILOCAINE
     Dosage: THREE TIMES DAILY AS NEEDED
     Route: 061
  26. CALCIUM VITAMIN D [Concomitant]
     Active Substance: CALCIUM\VITAMIN D
     Dosage: 1 TABLET DAILY
  27. NORCO [Concomitant]
     Active Substance: ACETAMINOPHEN\HYDROCODONE BITARTRATE
     Indication: PAIN
     Dosage: 7.5-325 MG 1 TABLET EVERY 4 HOURS AS NEEDED, 1 TABLET BEFORE BED
     Route: 048
  28. METOCLOPRAMIDE. [Concomitant]
     Active Substance: METOCLOPRAMIDE
     Indication: HEADACHE
  29. DEXEDRINE [Concomitant]
     Active Substance: DEXTROAMPHETAMINE SULFATE
     Dosage: 10 MG, 1 CAPSULE THREE TIMES DAILY
     Route: 048
  30. DEXTROAMPHETAMINE SULFATE. [Concomitant]
     Active Substance: DEXTROAMPHETAMINE SULFATE
     Dosage: 10 MG, I TABLET TWICE DAILY
     Route: 048
     Dates: start: 20180601
  31. MONTELUKAST SODIUM. [Concomitant]
     Active Substance: MONTELUKAST SODIUM
     Dosage: 10 MG, 1 TABLET EVERYDAY
     Route: 048
  32. SAPHRIS [Concomitant]
     Active Substance: ASENAPINE MALEATE
     Dosage: 10 MG, 3 TABLETS DAILY
     Route: 060

REACTIONS (8)
  - Nystagmus [Not Recovered/Not Resolved]
  - Headache [Not Recovered/Not Resolved]
  - Hypoaesthesia [Unknown]
  - Visual field defect [Unknown]
  - Vertigo [Unknown]
  - Heterophoria [Unknown]
  - Diplopia [Recovering/Resolving]
  - Paraesthesia [Unknown]

NARRATIVE: CASE EVENT DATE: 2018
